FAERS Safety Report 25533069 (Version 1)
Quarter: 2025Q3

REPORT INFORMATION
  Report Type: Report from Study
  Country: CH (occurrence: CH)
  Receive Date: 20250709
  Receipt Date: 20250709
  Transmission Date: 20251020
  Serious: Yes (Other)
  Sender: RANBAXY
  Company Number: CH-SUN PHARMACEUTICAL INDUSTRIES INC-2025R1-515829

PATIENT

DRUGS (6)
  1. DOCETAXEL [Suspect]
     Active Substance: DOCETAXEL
     Indication: Phaeochromocytoma
     Route: 065
  2. PACLITAXEL [Suspect]
     Active Substance: PACLITAXEL
     Indication: Phaeochromocytoma
     Route: 065
  3. VINCRISTINE [Suspect]
     Active Substance: VINCRISTINE
     Indication: Phaeochromocytoma
     Route: 065
  4. CYCLOPHOSPHAMIDE [Suspect]
     Active Substance: CYCLOPHOSPHAMIDE
     Indication: Phaeochromocytoma
     Route: 065
  5. DACARBAZINE [Suspect]
     Active Substance: DACARBAZINE
     Indication: Phaeochromocytoma
     Route: 065
  6. EVEROLIMUS [Suspect]
     Active Substance: EVEROLIMUS
     Indication: Phaeochromocytoma
     Route: 065

REACTIONS (1)
  - Disease progression [Unknown]
